FAERS Safety Report 17188442 (Version 1)
Quarter: 2019Q4

REPORT INFORMATION
  Report Type: Report from Study
  Country: US (occurrence: US)
  Receive Date: 20191222
  Receipt Date: 20191222
  Transmission Date: 20200122
  Serious: Yes (Hospitalization)
  Sender: FDA-Public Use
  Company Number: US-EISAI MEDICAL RESEARCH-EC-2019-064350

PATIENT
  Sex: Female

DRUGS (1)
  1. LENVIMA [Suspect]
     Active Substance: LENVATINIB
     Indication: THYROID CANCER
     Route: 048
     Dates: start: 20191019

REACTIONS (4)
  - Nausea [Unknown]
  - Haemorrhage [Unknown]
  - Eating disorder [Unknown]
  - Mass [Recovering/Resolving]

NARRATIVE: CASE EVENT DATE: 2019
